FAERS Safety Report 15692018 (Version 1)
Quarter: 2018Q4

REPORT INFORMATION
  Report Type: Report from Study
  Country: US (occurrence: US)
  Receive Date: 20181205
  Receipt Date: 20181205
  Transmission Date: 20190205
  Serious: Yes (Hospitalization, Other)
  Sender: FDA-Public Use
  Company Number: US-SHIRE-US201846083

PATIENT
  Sex: Female

DRUGS (2)
  1. GATTEX [Suspect]
     Active Substance: TEDUGLUTIDE\WATER
     Indication: OVARIAN CANCER
     Dosage: 4.1 MG, 1X/DAY:QD
     Route: 058
     Dates: start: 20180128
  2. GATTEX [Suspect]
     Active Substance: TEDUGLUTIDE\WATER
     Indication: MALABSORPTION

REACTIONS (3)
  - Sneezing [Unknown]
  - Dyspnoea [Unknown]
  - Device related sepsis [Unknown]
